FAERS Safety Report 20525019 (Version 1)
Quarter: 2022Q1

REPORT INFORMATION
  Report Type: Spontaneous
  Country: CN (occurrence: CN)
  Receive Date: 20220228
  Receipt Date: 20220228
  Transmission Date: 20220423
  Serious: Yes (Other)
  Sender: FDA-Public Use
  Company Number: CN-MLMSERVICE-20220217-3380868-1

PATIENT
  Age: 14 Year
  Sex: Male

DRUGS (6)
  1. ETOPOSIDE [Suspect]
     Active Substance: ETOPOSIDE
     Indication: Cutaneous T-cell lymphoma
     Dosage: 20 MG D1-5/21 D CYCLE?CUMULATIVE DOSE: 5 CYCLICAL
     Dates: start: 201709
  2. VINCRISTINE [Suspect]
     Active Substance: VINCRISTINE
     Indication: Cutaneous T-cell lymphoma
     Dosage: 2 MG D1/21 D CYCLE?CUMULATIVE DOSE: 5 CYCLICAL
     Dates: start: 201709
  3. CYCLOPHOSPHAMIDE [Suspect]
     Active Substance: CYCLOPHOSPHAMIDE
     Indication: Cutaneous T-cell lymphoma
     Dosage: 1100 D1/21 D CYCLE?CUMULATIVE DOSE: 5 CYCLICAL
     Dates: start: 201709
  4. TUCIDINOSTAT [Suspect]
     Active Substance: TUCIDINOSTAT
     Indication: Cutaneous T-cell lymphoma
     Dosage: 30 MG BIW (TWICE A WEEK), 21 D CYCLE?CUMULATIVE DOSE: 5 CYCLICAL
     Dates: start: 201709
  5. DEXAMETHASONE [Suspect]
     Active Substance: DEXAMETHASONE
     Indication: Cutaneous T-cell lymphoma
     Dosage: 2 MG D1-5/21 D CYCLE?CUMULATIVE DOSE: 5 CYCLICAL
     Dates: start: 201709
  6. DOXORUBICIN [Suspect]
     Active Substance: DOXORUBICIN
     Indication: Cutaneous T-cell lymphoma
     Dosage: 70 MG D1/21 D CYCLE?CUMULATIVE DOSE: 5 CYCLICAL
     Dates: start: 201709

REACTIONS (2)
  - Myelosuppression [Recovered/Resolved]
  - Haematotoxicity [Recovered/Resolved]
